FAERS Safety Report 8796305 (Version 1)
Quarter: 2012Q4

REPORT INFORMATION
  Report Type: 
  Country: US (occurrence: US)
  Receive Date: 20120919
  Receipt Date: 20120919
  Transmission Date: 20130627
  Serious: No
  Sender: FDA-Public Use
  Company Number: US-PFIZER INC-2012231764

PATIENT
  Age: 55 Year
  Sex: Female
  Weight: 80.27 kg

DRUGS (2)
  1. LYRICA [Suspect]
     Indication: FIBROMYALGIA
     Dosage: 150 mg, 1x/day
     Route: 048
     Dates: start: 201201
  2. CELEBREX [Concomitant]
     Dosage: UNK

REACTIONS (1)
  - Weight increased [Unknown]
